FAERS Safety Report 15504298 (Version 1)
Quarter: 2018Q4

REPORT INFORMATION
  Report Type: Spontaneous
  Country: US (occurrence: US)
  Receive Date: 20181016
  Receipt Date: 20181016
  Transmission Date: 20190205
  Serious: No
  Sender: FDA-Public Use
  Company Number: US-B.I. PHARMACEUTICALS,INC./RIDGEFIELD-2018-BI-049797

PATIENT
  Age: 54 Year
  Sex: Female

DRUGS (2)
  1. MICARDIS [Suspect]
     Active Substance: TELMISARTAN
     Indication: HYPERTENSION
     Dosage: FORM STRENGTH: 40 MG; FORMULATION: TABLET? YES ?ACTION TAKEN  DOSE NOT CHANGED
     Route: 048
     Dates: start: 2013
  2. BRISDELLE [Concomitant]
     Active Substance: PAROXETINE MESYLATE
     Indication: HOT FLUSH
     Dosage: ONE DAILY;  FORM STRENGTH: 20 MG; FORMULATION: TABLET
     Route: 048

REACTIONS (2)
  - Hypoaesthesia oral [Not Recovered/Not Resolved]
  - Product quality issue [Not Recovered/Not Resolved]

NARRATIVE: CASE EVENT DATE: 20181007
